FAERS Safety Report 7483456-X (Version None)
Quarter: 2011Q2

REPORT INFORMATION
  Report Type: 
  Country: None (occurrence: None)
  Receive Date: 20110517
  Receipt Date: 20110503
  Transmission Date: 20111010
  Serious: Yes (Life-Threatening, Hospitalization)
  Sender: FDA-Public Use
  Company Number: FR-JNJFOC-20110403559

PATIENT
  Age: 40 Year
  Sex: Male
  Weight: 92 kg

DRUGS (4)
  1. METHOTREXATE [Concomitant]
     Indication: PSORIASIS
     Route: 048
     Dates: start: 20101214, end: 20110403
  2. REMICADE [Suspect]
     Indication: PSORIASIS
     Route: 042
     Dates: start: 20110128
  3. REMICADE [Suspect]
     Route: 042
     Dates: start: 20110113
  4. REMICADE [Suspect]
     Route: 042
     Dates: start: 20110225, end: 20110225

REACTIONS (2)
  - ACUTE RESPIRATORY DISTRESS SYNDROME [None]
  - LUNG INFECTION [None]
